FAERS Safety Report 6298288-8 (Version None)
Quarter: 2009Q3

REPORT INFORMATION
  Report Type: 
  Country: None (occurrence: None)
  Receive Date: 20090805
  Receipt Date: 20090727
  Transmission Date: 20100115
  Serious: Yes (Death)
  Sender: FDA-Public Use
  Company Number: CN-ABBOTT-09P-035-0582706-00

PATIENT
  Age: 3 Year
  Sex: Male
  Weight: 12 kg

DRUGS (7)
  1. SEVOFLURANE [Suspect]
     Indication: EYE OPERATION
     Dosage: INDUCTION WITH 8% AND 1% FOR MAINTENANCE.
     Dates: start: 20090622, end: 20090622
  2. MIDAZOLAM HCL [Concomitant]
     Indication: GENERAL ANAESTHESIA
     Route: 042
     Dates: start: 20090622, end: 20090622
  3. FENTANYL [Concomitant]
     Indication: GENERAL ANAESTHESIA
     Route: 042
     Dates: start: 20090622, end: 20090622
  4. PROPOFOL [Concomitant]
     Indication: GENERAL ANAESTHESIA
     Route: 042
     Dates: start: 20090622, end: 20090622
  5. PROPOFOL [Concomitant]
     Route: 042
     Dates: start: 20090622, end: 20090622
  6. VECURONIUM BROMIDE [Concomitant]
     Indication: GENERAL ANAESTHESIA
     Route: 042
     Dates: start: 20090622, end: 20090622
  7. ANTIBIOTICS [Concomitant]
     Indication: INFECTION PROPHYLAXIS
     Route: 042
     Dates: start: 20090623, end: 20090623

REACTIONS (4)
  - CONVULSION [None]
  - HEART RATE INCREASED [None]
  - LOSS OF CONSCIOUSNESS [None]
  - PHARYNGEAL OEDEMA [None]
